FAERS Safety Report 4435123-4 (Version None)
Quarter: 2004Q3

REPORT INFORMATION
  Report Type: 
  Country: None (occurrence: None)
  Receive Date: 20040826
  Receipt Date: 20040826
  Transmission Date: 20050211
  Serious: Yes (Hospitalization)
  Sender: FDA-Public Use
  Company Number: None

PATIENT
  Age: 76 Year
  Sex: Female

DRUGS (8)
  1. SIMVASTATIN [Suspect]
     Dosage: 80 MG
  2. PREDNISONE [Concomitant]
  3. CYCLOSPORINE [Concomitant]
  4. ATENOLOL [Concomitant]
  5. CALCIUM CARBONATE (TUMS) [Concomitant]
  6. ASPIRIN [Concomitant]
  7. CLOPIDOGREL [Concomitant]
  8. LISINOPRIL [Concomitant]

REACTIONS (1)
  - RHABDOMYOLYSIS [None]
